FAERS Safety Report 9539161 (Version 1)
Quarter: 2013Q2

REPORT INFORMATION
  Report Type: Spontaneous
  Country: US (occurrence: None)
  Receive Date: 20130521
  Receipt Date: 20130521
  Transmission Date: 20140414
  Serious: No
  Sender: FDA-Public Use
  Company Number: 1000043081

PATIENT
  Age: 80 Year
  Sex: Male

DRUGS (1)
  1. TUDORZA PRESSAIR (ACLIDINIUM BROMIDE) (400 MICROGRAM, POWDER) [Suspect]

REACTIONS (2)
  - Nasopharyngitis [None]
  - Mouth ulceration [None]
